FAERS Safety Report 7349020-8 (Version None)
Quarter: 2011Q1

REPORT INFORMATION
  Report Type: 
  Country: None (occurrence: None)
  Receive Date: 20110314
  Receipt Date: 20110307
  Transmission Date: 20110831
  Serious: Yes (Hospitalization)
  Sender: FDA-Public Use
  Company Number: TR-US-EMD SERONO, INC.-7045993

PATIENT
  Sex: Female
  Weight: 70 kg

DRUGS (2)
  1. VENEGIS CAPS (VENLAFAXINE) [Concomitant]
  2. REBIF [Suspect]
     Indication: MULTIPLE SCLEROSIS
     Route: 058
     Dates: start: 20100901

REACTIONS (3)
  - MYDRIASIS [None]
  - HYPOAESTHESIA [None]
  - ASTHENIA [None]
